FAERS Safety Report 13151688 (Version 1)
Quarter: 2017Q1

REPORT INFORMATION
  Report Type: Spontaneous
  Country: US (occurrence: US)
  Receive Date: 20170125
  Receipt Date: 20170125
  Transmission Date: 20170428
  Serious: No
  Sender: FDA-Public Use
  Company Number: US-TEVA-729203ACC

PATIENT
  Sex: Female

DRUGS (12)
  1. GABAPENTIN CAP [Concomitant]
  2. AMOXICILLIN CAP [Concomitant]
  3. CEFDINIR CAP [Concomitant]
  4. METHIMAZOLE TAB [Concomitant]
  5. AZITHROMYCIN TAB [Concomitant]
  6. NAPROXEN TAB [Concomitant]
  7. LORAZEPAM TAB [Concomitant]
  8. PROPYLTHIOUR TAB [Concomitant]
  9. DOXEPIN HCL CAP [Concomitant]
  10. COPAXONE [Suspect]
     Active Substance: GLATIRAMER ACETATE
     Indication: MULTIPLE SCLEROSIS
     Route: 058
     Dates: start: 20161101
  11. CLINDAMYCIN CAP [Concomitant]
  12. LEXAPRO TAB [Concomitant]

REACTIONS (1)
  - Nausea [Unknown]
